APPROVED DRUG PRODUCT: SILDENAFIL CITRATE
Active Ingredient: SILDENAFIL CITRATE
Strength: EQ 100MG BASE
Dosage Form/Route: TABLET;ORAL
Application: A202255 | Product #003 | TE Code: AB
Applicant: MACLEODS PHARMACEUTICALS LTD
Approved: Apr 19, 2023 | RLD: No | RS: No | Type: RX